FAERS Safety Report 10355131 (Version 2)
Quarter: 2014Q4

REPORT INFORMATION
  Report Type: Spontaneous
  Country: JP (occurrence: JP)
  Receive Date: 20140731
  Receipt Date: 20141106
  Transmission Date: 20150528
  Serious: Yes (Death, Other)
  Sender: FDA-Public Use
  Company Number: PHHY2011JP121235

PATIENT
  Age: 70 Year
  Sex: Female
  Weight: 61 kg

DRUGS (10)
  1. AFINITOR [Suspect]
     Active Substance: EVEROLIMUS
     Indication: METASTASES TO LIVER
  2. AFINITOR [Suspect]
     Active Substance: EVEROLIMUS
     Indication: METASTASES TO LYMPH NODES
  3. TAKEPRON [Concomitant]
     Active Substance: LANSOPRAZOLE
     Indication: PRODUCT USED FOR UNKNOWN INDICATION
     Dosage: 15 MG, UNK
     Route: 048
     Dates: start: 20110928
  4. WARFARIN [Concomitant]
     Active Substance: WARFARIN
     Indication: PROSTHETIC VESSEL IMPLANTATION
     Dosage: 3 MG, UNK
     Route: 048
     Dates: start: 20110928
  5. DIOVAN [Concomitant]
     Active Substance: VALSARTAN
     Indication: HYPERTENSION
     Dosage: 160 MG, UNK
     Route: 048
     Dates: start: 20110928, end: 20111109
  6. AFINITOR [Suspect]
     Active Substance: EVEROLIMUS
     Indication: RENAL CELL CARCINOMA
     Dosage: 10 MG, QD
     Route: 048
     Dates: start: 20110928
  7. AFINITOR [Suspect]
     Active Substance: EVEROLIMUS
     Indication: METASTASES TO LUNG
     Dosage: 5 MG, QD
     Route: 048
     Dates: start: 20111130, end: 20111228
  8. AMLODIPINE [Concomitant]
     Active Substance: AMLODIPINE BESYLATE
     Indication: HYPERTENSION
     Dosage: 5 MG, UNK
     Route: 048
     Dates: start: 20110928
  9. MUCODYNE [Concomitant]
     Active Substance: CARBOCYSTEINE
     Indication: PRODUCT USED FOR UNKNOWN INDICATION
     Dosage: 1500 MG, UNK
     Route: 048
     Dates: start: 20110928
  10. MUCOSOLVAN [Concomitant]
     Active Substance: AMBROXOL\CLENBUTEROL
     Indication: PRODUCT USED FOR UNKNOWN INDICATION
     Dosage: 45 MG, UNK
     Route: 048
     Dates: start: 20110928

REACTIONS (16)
  - Lower respiratory tract inflammation [Recovering/Resolving]
  - Malignant neoplasm progression [Unknown]
  - Infection [Unknown]
  - Atypical mycobacterial infection [Recovering/Resolving]
  - Bronchial haemorrhage [Fatal]
  - Renal cell carcinoma [Fatal]
  - C-reactive protein increased [Unknown]
  - Cough [Recovering/Resolving]
  - Blood lactate dehydrogenase increased [Unknown]
  - Dyspnoea [Unknown]
  - Fatigue [Unknown]
  - Hypoalbuminaemia [Unknown]
  - Anaemia [Unknown]
  - Wheezing [Recovering/Resolving]
  - Pyrexia [Recovering/Resolving]
  - Lymphocyte count decreased [Unknown]

NARRATIVE: CASE EVENT DATE: 20111005
